FAERS Safety Report 7013528-5 (Version None)
Quarter: 2010Q3

REPORT INFORMATION
  Report Type: 
  Country: None (occurrence: None)
  Receive Date: 20100924
  Receipt Date: 20100819
  Transmission Date: 20110219
  Serious: No
  Sender: FDA-Public Use
  Company Number: US-BAYER-201020277BCC

PATIENT
  Sex: Female

DRUGS (4)
  1. ALEVE [Suspect]
     Indication: BACK PAIN
     Dosage: TOTAL DAILY DOSE: 110 MG  UNIT DOSE: 220 MG
     Route: 048
     Dates: start: 20100818
  2. REQUIP [Concomitant]
  3. UNKNOWN PARKINSON'S MEDICATIONS [Concomitant]
     Indication: PARKINSON'S DISEASE
  4. SYNTHROID [Concomitant]

REACTIONS (1)
  - NAUSEA [None]
